FAERS Safety Report 7142305-X (Version None)
Quarter: 2010Q4

REPORT INFORMATION
  Report Type: 
  Country: None (occurrence: None)
  Receive Date: 20101112
  Receipt Date: 20101013
  Transmission Date: 20110411
  Serious: No
  Sender: FDA-Public Use
  Company Number: 1000015744

PATIENT
  Age: 64 Year
  Sex: Female

DRUGS (7)
  1. SAVELLA [Suspect]
     Indication: FIBROMYALGIA
     Dosage: 12.5 MG (12.5 MG, 1 IN 1 D) ORAL; 25 MG (12.5 MG, 2 IN 1 D) ORAL; 50 MG (12.5 MG, 2 IN 1 D) ORAL
     Route: 048
     Dates: start: 20100523, end: 20100524
  2. SAVELLA [Suspect]
     Indication: FIBROMYALGIA
     Dosage: 12.5 MG (12.5 MG, 1 IN 1 D) ORAL; 25 MG (12.5 MG, 2 IN 1 D) ORAL; 50 MG (12.5 MG, 2 IN 1 D) ORAL
     Route: 048
     Dates: start: 20100525, end: 20100528
  3. SAVELLA [Suspect]
     Indication: FIBROMYALGIA
     Dosage: 12.5 MG (12.5 MG, 1 IN 1 D) ORAL; 25 MG (12.5 MG, 2 IN 1 D) ORAL; 50 MG (12.5 MG, 2 IN 1 D) ORAL
     Route: 048
     Dates: start: 20100529, end: 20100606
  4. SAVELLA [Suspect]
     Indication: FIBROMYALGIA
     Dosage: 100 MG (50 MG, 2 IN 1 D) ORAL
     Route: 048
     Dates: start: 20100529, end: 20100606
  5. ENALAPRIL [Concomitant]
  6. PROZAC [Concomitant]
  7. TRAMADOL [Concomitant]

REACTIONS (8)
  - ABDOMINAL PAIN [None]
  - BLOOD PRESSURE INCREASED [None]
  - CONFUSIONAL STATE [None]
  - HEADACHE [None]
  - HOT FLUSH [None]
  - IRRITABILITY [None]
  - NAUSEA [None]
  - NIGHTMARE [None]
